FAERS Safety Report 20510005 (Version 2)
Quarter: 2025Q4

REPORT INFORMATION
  Report Type: Report from Study
  Country: US (occurrence: US)
  Receive Date: 20220224
  Receipt Date: 20251224
  Transmission Date: 20260118
  Serious: No
  Sender: RECORDATI
  Company Number: US-RECORDATI RARE DISEASE INC.-2022000295

PATIENT
  Age: 26 Year
  Sex: Male

DRUGS (5)
  1. CYSTADANE [Suspect]
     Active Substance: BETAINE
     Indication: Homocystinuria
     Dosage: 4 GRAM, TID
     Route: 048
     Dates: start: 20140728
  2. CYSTADANE [Suspect]
     Active Substance: BETAINE
     Dosage: 5 GRAM, TID
     Route: 048
     Dates: start: 20150223
  3. ASPIRIN [Concomitant]
     Active Substance: ASPIRIN
     Indication: Cerebrovascular accident prophylaxis
     Dosage: 81 MILLIGRAM
  4. VITAMIN D [Concomitant]
     Active Substance: VITAMIN D NOS
     Indication: Hypovitaminosis
     Dosage: UNK
  5. XALATAN [Concomitant]
     Active Substance: LATANOPROST
     Indication: Glaucoma
     Dosage: EYE DROPS

REACTIONS (3)
  - Tooth disorder [Not Recovered/Not Resolved]
  - Alopecia [Not Recovered/Not Resolved]
  - Off label use [Recovered/Resolved]

NARRATIVE: CASE EVENT DATE: 20140728
